FAERS Safety Report 7507529-8 (Version None)
Quarter: 2011Q2

REPORT INFORMATION
  Report Type: 
  Country: None (occurrence: None)
  Receive Date: 20110526
  Receipt Date: 20110408
  Transmission Date: 20111010
  Serious: No
  Sender: FDA-Public Use
  Company Number: US-MYLANLABS-2011S1005419

PATIENT
  Age: 60 Year
  Sex: Male
  Weight: 88.45 kg

DRUGS (3)
  1. XANAX [Concomitant]
     Indication: HEADACHE
  2. ZOLPIDEM TARTRATE [Suspect]
     Indication: INSOMNIA
     Route: 048
     Dates: start: 20110201
  3. NAPROXEN [Concomitant]
     Route: 048

REACTIONS (2)
  - DRUG EFFECT DECREASED [None]
  - INSOMNIA [None]
